FAERS Safety Report 11185528 (Version 1)
Quarter: 2015Q2

REPORT INFORMATION
  Report Type: Spontaneous
  Country: FR (occurrence: FR)
  Receive Date: 20150612
  Receipt Date: 20150612
  Transmission Date: 20150821
  Serious: Yes (Death, Life-Threatening, Hospitalization, Other)
  Sender: FDA-Public Use
  Company Number: FR-ASTRAZENECA-2015SE55998

PATIENT
  Age: 63 Year
  Sex: Female

DRUGS (16)
  1. LANTUS [Concomitant]
     Active Substance: INSULIN GLARGINE
  2. ARGININE [Concomitant]
     Active Substance: ARGININE
  3. BENZOATE DE SODIUM [Concomitant]
  4. NOVORAPID [Concomitant]
     Active Substance: INSULIN ASPART
  5. AMMONAPS [Suspect]
     Active Substance: SODIUM PHENYLBUTYRATE
     Indication: AMMONIA INCREASED
     Route: 048
     Dates: end: 201401
  6. LEVOCARNIL [Concomitant]
     Active Substance: LEVOCARNITINE
  7. DUPHALAC [Concomitant]
     Active Substance: LACTULOSE
  8. IMUREL [Suspect]
     Active Substance: AZATHIOPRINE SODIUM
     Route: 048
     Dates: end: 201401
  9. CORTANCYL [Suspect]
     Active Substance: PREDNISONE
     Indication: ANAEMIA
     Route: 048
     Dates: end: 201401
  10. URSOLVAN [Concomitant]
     Active Substance: URSODIOL
  11. INEXIUM [Suspect]
     Active Substance: ESOMEPRAZOLE
     Route: 048
     Dates: end: 201401
  12. ALDACTONE [Concomitant]
     Active Substance: SPIRONOLACTONE
  13. CORTANCYL [Suspect]
     Active Substance: PREDNISONE
     Indication: ANAEMIA
     Route: 048
     Dates: start: 201401
  14. APROVEL [Concomitant]
     Active Substance: IRBESARTAN
  15. LASILIX FAIBLE [Concomitant]
     Active Substance: FUROSEMIDE
  16. DIFFU K [Concomitant]
     Active Substance: POTASSIUM CHLORIDE

REACTIONS (6)
  - Leukopenia [Not Recovered/Not Resolved]
  - Neutropenia [Not Recovered/Not Resolved]
  - Lymphopenia [Unknown]
  - Multi-organ failure [Fatal]
  - Septic shock [Fatal]
  - Biliary cirrhosis primary [Unknown]

NARRATIVE: CASE EVENT DATE: 20140103
